FAERS Safety Report 17858209 (Version 1)
Quarter: 2020Q2

REPORT INFORMATION
  Report Type: Spontaneous
  Country: US (occurrence: US)
  Receive Date: 20200604
  Receipt Date: 20200604
  Transmission Date: 20200714
  Serious: Yes (Hospitalization, Other)
  Sender: FDA-Public Use
  Company Number: NVSC2020US153803

PATIENT
  Age: 56 Year
  Sex: Female

DRUGS (5)
  1. MYCOPHENOLATE MOFETIL. [Suspect]
     Active Substance: MYCOPHENOLATE MOFETIL
     Indication: IRIDOCYCLITIS
     Dosage: 1500 MG, BIW
     Route: 065
  2. DIFLUPREDNATE [Suspect]
     Active Substance: DIFLUPREDNATE
     Indication: IRIDOCYCLITIS
     Route: 061
  3. ADALIMUMAB [Suspect]
     Active Substance: ADALIMUMAB
     Dosage: 40 UNK, QW
     Route: 065
  4. MYCOPHENOLATE MOFETIL. [Suspect]
     Active Substance: MYCOPHENOLATE MOFETIL
     Indication: POLYCHONDRITIS
     Dosage: 1000MG AM AND 1500 MG PM
     Route: 065
  5. ADALIMUMAB [Suspect]
     Active Substance: ADALIMUMAB
     Indication: IRIDOCYCLITIS
     Dosage: 40 MG, QW2
     Route: 065

REACTIONS (3)
  - Iridocyclitis [Unknown]
  - Product use in unapproved indication [Unknown]
  - Pneumonia aspiration [Unknown]
